FAERS Safety Report 8305185-2 (Version None)
Quarter: 2012Q2

REPORT INFORMATION
  Report Type: 
  Country: None (occurrence: None)
  Receive Date: 20120411
  Receipt Date: 20120327
  Transmission Date: 20120825
  Serious: Yes (Hospitalization)
  Sender: FDA-Public Use
  Company Number: 2012031792

PATIENT
  Age: 70 Year
  Sex: Female
  Weight: 80.2867 kg

DRUGS (2)
  1. CARIMUNE NF [Suspect]
     Indication: MUSCULAR WEAKNESS
     Dosage: (72 G 1X/4 WEEKS, 12 GM VIAL INTRAVENOUS (NOT OTHERWISE SPECIFIED))
     Route: 042
     Dates: start: 20070101
  2. FORTEO [Concomitant]

REACTIONS (4)
  - VOMITING [None]
  - DEHYDRATION [None]
  - NAUSEA [None]
  - MALAISE [None]
